FAERS Safety Report 7423369-2 (Version None)
Quarter: 2011Q2

REPORT INFORMATION
  Report Type: 
  Country: None (occurrence: None)
  Receive Date: 20110419
  Receipt Date: 20110406
  Transmission Date: 20111010
  Serious: Yes (Hospitalization, Other)
  Sender: FDA-Public Use
  Company Number: PHHY2011US28836

PATIENT
  Sex: Female

DRUGS (10)
  1. METOPROLOL [Concomitant]
     Dosage: 0.5 DF, PER DAY
  2. LIPITOR [Concomitant]
  3. CENTRUM [Concomitant]
  4. LANSOTRAZOLE [Concomitant]
  5. DIOVAN [Suspect]
     Dosage: 80 MG, PER DAY
  6. ZYRTEC [Concomitant]
  7. ASPIRIN [Concomitant]
     Dosage: 81 MG, UNK
  8. VITAMINS [Concomitant]
  9. DIOVAN [Suspect]
     Dosage: 160 MG, PER DAY
  10. SERTALINE [Concomitant]

REACTIONS (2)
  - COLLAPSE OF LUNG [None]
  - PNEUMONIA [None]
